FAERS Safety Report 5606660-1 (Version None)
Quarter: 2008Q1

REPORT INFORMATION
  Report Type: 
  Country: None (occurrence: None)
  Receive Date: 20080129
  Receipt Date: 20080117
  Transmission Date: 20080703
  Serious: Yes (Death, Other)
  Sender: FDA-Public Use
  Company Number: FR-ROCHE-442893

PATIENT
  Age: 13 Year
  Sex: Male
  Weight: 31 kg

DRUGS (8)
  1. VALGANCICLOVIR HCL [Suspect]
     Dosage: STARTED TWO WEEKS AFTER INTRAVENOUS GANCICLOVIR HAD BEEN STARTED. STRENGTH REPORTED AS 450MG
     Route: 065
     Dates: start: 20040601, end: 20040914
  2. VALGANCICLOVIR HCL [Suspect]
     Dosage: RESTARTED WHEN THE PATIENT RECOVERED CLARIFIED AS A HALF A TABLET
     Route: 065
  3. VALGANCICLOVIR HCL [Suspect]
     Dosage: DOSE INCREASED TO ONE TABLET WHEN CMV INFECTION WORESNED
     Route: 065
  4. ACYCLOVIR [Suspect]
     Indication: ENCEPHALITIS HERPES
     Route: 065
     Dates: start: 20040913, end: 20040914
  5. OMEPRAZOLE [Concomitant]
     Dates: end: 20040914
  6. FUROSEMIDE [Concomitant]
     Dosage: IF THE URINE OUTPUT WAS LESS THAN 400MLS PER DAY
     Dates: end: 20040914
  7. ACETAMINOPHEN [Concomitant]
     Dates: end: 20040914
  8. ELSPAR [Concomitant]

REACTIONS (3)
  - NEUROTOXICITY [None]
  - OVERDOSE [None]
  - RENAL FAILURE [None]
